FAERS Safety Report 5609697-1 (Version None)
Quarter: 2008Q1

REPORT INFORMATION
  Report Type: 
  Country: None (occurrence: None)
  Receive Date: 20080131
  Receipt Date: 20080122
  Transmission Date: 20080703
  Serious: Yes (Death)
  Sender: FDA-Public Use
  Company Number: B0504973A

PATIENT
  Age: 5 Year
  Sex: Female
  Weight: 20 kg

DRUGS (3)
  1. MYLERAN [Suspect]
     Indication: CHEMOTHERAPY
     Route: 048
     Dates: start: 20070929, end: 20070929
  2. VP-16 [Concomitant]
     Route: 042
     Dates: start: 20070930
  3. ENDOXAN [Concomitant]
     Route: 042
     Dates: start: 20071001, end: 20071002

REACTIONS (6)
  - BRAIN OEDEMA [None]
  - CARDIOVASCULAR INSUFFICIENCY [None]
  - HEPATOMEGALY [None]
  - PULMONARY OEDEMA [None]
  - RESPIRATORY FAILURE [None]
  - VENOOCCLUSIVE DISEASE [None]
